FAERS Safety Report 10549842 (Version 2)
Quarter: 2014Q4

REPORT INFORMATION
  Report Type: Report from Study
  Country: US (occurrence: FR)
  Receive Date: 20141028
  Receipt Date: 20141028
  Transmission Date: 20150529
  Serious: Yes (Hospitalization)
  Sender: FDA-Public Use
  Company Number: FR-CELGENE-056-AB007-14074188

PATIENT
  Age: 73 Year
  Sex: Female
  Weight: 76 kg

DRUGS (6)
  1. DOLIPRANE [Concomitant]
     Active Substance: ACETAMINOPHEN
     Indication: HEPATIC PAIN
     Route: 048
     Dates: start: 201407
  2. ABRAXANE [Suspect]
     Active Substance: PACLITAXEL
     Indication: COLORECTAL CANCER METASTATIC
     Route: 041
     Dates: start: 20140717, end: 20140717
  3. ALPRAZOLAM. [Concomitant]
     Active Substance: ALPRAZOLAM
     Indication: ANXIETY
     Route: 048
     Dates: end: 201408
  4. PANTOPRAZOLE [Concomitant]
     Active Substance: PANTOPRAZOLE SODIUM
     Indication: GASTROOESOPHAGEAL REFLUX DISEASE
     Dosage: 2.5 MILLIGRAM
     Route: 048
     Dates: end: 201408
  5. ABRAXANE [Suspect]
     Active Substance: PACLITAXEL
     Route: 041
     Dates: end: 20140724
  6. RAMIPRIL. [Concomitant]
     Active Substance: RAMIPRIL
     Indication: HYPERTENSION
     Route: 048
     Dates: end: 201408

REACTIONS (1)
  - Biliary dilatation [Recovered/Resolved with Sequelae]

NARRATIVE: CASE EVENT DATE: 20140724
